FAERS Safety Report 5864539-4 (Version None)
Quarter: 2008Q3

REPORT INFORMATION
  Report Type: 
  Country: None (occurrence: None)
  Receive Date: 20080829
  Receipt Date: 20080821
  Transmission Date: 20090109
  Serious: Yes (Life-Threatening)
  Sender: FDA-Public Use
  Company Number: PK-AVENTIS-200817978GDDC

PATIENT
  Age: 28 Year
  Sex: Female
  Weight: 78 kg

DRUGS (2)
  1. FLAGYL [Suspect]
     Dosage: DOSE: 500MG/100ML 10-20DROPS/MIN
     Route: 042
     Dates: start: 20080819, end: 20080819
  2. BUPIVACAINE HYDROCHLORIDE [Concomitant]
     Route: 024
     Dates: start: 20080819, end: 20080819

REACTIONS (2)
  - BRADYCARDIA [None]
  - SUFFOCATION FEELING [None]
